FAERS Safety Report 8818666 (Version 1)
Quarter: 2012Q4

REPORT INFORMATION
  Report Type: Spontaneous
  Country: US (occurrence: None)
  Receive Date: 20121002
  Receipt Date: 20121002
  Transmission Date: 20130627
  Serious: Yes (Life-Threatening, Other)
  Sender: FDA-Public Use
  Company Number: 100218-000150

PATIENT
  Age: 16 Year
  Sex: Female

DRUGS (2)
  1. PROACTIV RENEWING CLEANSER [Suspect]
     Dosage: ONCE DAILY dermal
     Dates: start: 20100202, end: 20100204
  2. PROACTIV REPAIRING TREATMENT [Suspect]
     Dosage: ONCE DAILY
     Dates: start: 20100202, end: 20100204

REACTIONS (3)
  - Pyrexia [None]
  - Rash [None]
  - Purulence [None]
